FAERS Safety Report 11246268 (Version 1)
Quarter: 2015Q3

REPORT INFORMATION
  Report Type: Spontaneous
  Country: US (occurrence: None)
  Receive Date: 20150706
  Receipt Date: 20150706
  Transmission Date: 20151125
  Serious: Yes (Life-Threatening, Hospitalization, Disabling)
  Sender: FDA-Public Use
  Company Number: None

PATIENT
  Age: 44 Year
  Sex: Female
  Weight: 50.8 kg

DRUGS (2)
  1. ZESTORETIC/HYDROCODONE [Concomitant]
  2. ZITHROMAX [Suspect]
     Active Substance: AZITHROMYCIN DIHYDRATE
     Indication: DRUG THERAPY
     Route: 048

REACTIONS (12)
  - Head injury [None]
  - Hyponatraemia [None]
  - Syncope [None]
  - Aggression [None]
  - Hypokalaemia [None]
  - Hypoxia [None]
  - Unresponsive to stimuli [None]
  - Haemorrhage [None]
  - Torsade de pointes [None]
  - Brain injury [None]
  - Drug interaction [None]
  - Seizure [None]

NARRATIVE: CASE EVENT DATE: 20140305
